FAERS Safety Report 6492043-1 (Version None)
Quarter: 2009Q4

REPORT INFORMATION
  Report Type: 
  Country: None (occurrence: None)
  Receive Date: 20091208
  Receipt Date: 20091126
  Transmission Date: 20100525
  Serious: Yes (Hospitalization)
  Sender: FDA-Public Use
  Company Number: 2009SP034368

PATIENT
  Age: 31 Year
  Sex: Female
  Weight: 46.3 kg

DRUGS (2)
  1. DESOGESTREL AND ETHINYL ESTRADIOL [Suspect]
     Indication: DYSMENORRHOEA
     Dosage: 1 DF;QD;PO
     Route: 048
     Dates: start: 20090901
  2. THYRADIN [Concomitant]

REACTIONS (5)
  - CARDIAC FAILURE [None]
  - DIARRHOEA [None]
  - DRUG HYPERSENSITIVITY [None]
  - PNEUMONIA PRIMARY ATYPICAL [None]
  - PULMONARY OEDEMA [None]
